FAERS Safety Report 9768344 (Version 4)
Quarter: 2014Q1

REPORT INFORMATION
  Report Type: Spontaneous
  Country: JP (occurrence: JP)
  Receive Date: 20131217
  Receipt Date: 20140114
  Transmission Date: 20141002
  Serious: No
  Sender: FDA-Public Use
  Company Number: CHPA2013JP018440

PATIENT
  Age: 9 Year
  Sex: Male

DRUGS (2)
  1. PURSENNID [Suspect]
     Indication: CONSTIPATION
     Dosage: 24 MG, QD
     Route: 048
     Dates: start: 20120410
  2. GASCON [Concomitant]
     Dosage: 80 MG, QD
     Route: 048
     Dates: start: 20131023

REACTIONS (2)
  - Underweight [Unknown]
  - Diarrhoea [Unknown]
